FAERS Safety Report 17766971 (Version 1)
Quarter: 2020Q2

REPORT INFORMATION
  Report Type: Spontaneous
  Country: US (occurrence: US)
  Receive Date: 20200511
  Receipt Date: 20200511
  Transmission Date: 20200714
  Serious: No
  Sender: FDA-Public Use
  Company Number: US-AMGEN-USASP2020074099

PATIENT
  Sex: Female

DRUGS (2)
  1. REPATHA [Suspect]
     Active Substance: EVOLOCUMAB
     Indication: CEREBRAL INFARCTION
  2. REPATHA [Suspect]
     Active Substance: EVOLOCUMAB
     Indication: TRANSIENT ISCHAEMIC ATTACK
     Dosage: 140 MILLIGRAM PER MILLILITRE, Q2WK,  IN THE ABDOMEN, THIGH OR OUTER AREA OF UPPER ARM (ROTATE SITES)
     Route: 058
     Dates: start: 201812

REACTIONS (1)
  - Product dose omission [Unknown]
